FAERS Safety Report 10703674 (Version 1)
Quarter: 2015Q1

REPORT INFORMATION
  Report Type: Spontaneous
  Country: AU (occurrence: AU)
  Receive Date: 20150112
  Receipt Date: 20150112
  Transmission Date: 20150721
  Serious: Yes (Other)
  Sender: FDA-Public Use
  Company Number: AU-AMGEN-AUSSP2015001431

PATIENT
  Sex: Female

DRUGS (1)
  1. PROLIA [Suspect]
     Active Substance: DENOSUMAB
     Indication: PRODUCT USED FOR UNKNOWN INDICATION
     Dosage: UNK
     Route: 065

REACTIONS (7)
  - Bone loss [Unknown]
  - Abdominal pain upper [Unknown]
  - Gait disturbance [Unknown]
  - Abdominal discomfort [Unknown]
  - Dysstasia [Unknown]
  - Pain in extremity [Unknown]
  - Fatigue [Unknown]
